FAERS Safety Report 16813441 (Version 1)
Quarter: 2019Q3

REPORT INFORMATION
  Report Type: Spontaneous
  Country: US (occurrence: US)
  Receive Date: 20190917
  Receipt Date: 20190917
  Transmission Date: 20191005
  Serious: Yes (Hospitalization)
  Sender: FDA-Public Use
  Company Number: US-BEH-2019106826

PATIENT
  Age: 75 Year
  Sex: Male

DRUGS (1)
  1. SET, I.V. FLUID TRANSFER/ NEEDLE, HYPODERMIC, SINGLE LUMEN [Suspect]
     Active Substance: .ALPHA.1-PROTEINASE INHIBITOR HUMAN
     Indication: ALPHA-1 ANTI-TRYPSIN DEFICIENCY
     Dosage: 6972 MILLIGRAM, QW
     Route: 042
     Dates: start: 20190627

REACTIONS (4)
  - No adverse event [Recovered/Resolved]
  - Insomnia [Unknown]
  - Product dose omission [Recovered/Resolved]
  - Dyspnoea [Unknown]

NARRATIVE: CASE EVENT DATE: 20190902
